FAERS Safety Report 23864831 (Version 3)
Quarter: 2024Q4

REPORT INFORMATION
  Report Type: Spontaneous
  Country: US (occurrence: US)
  Receive Date: 20240516
  Receipt Date: 20241226
  Transmission Date: 20250115
  Serious: Yes (Other)
  Sender: BIOMARIN
  Company Number: US-SA-SAC20240510000650

PATIENT

DRUGS (1)
  1. LARONIDASE [Suspect]
     Active Substance: LARONIDASE
     Indication: Mucopolysaccharidosis I
     Dosage: 37.7 (UNITS NOT PROVIDED), QW
     Route: 042
     Dates: start: 20231101, end: 20241113

REACTIONS (2)
  - Cataract [Recovering/Resolving]
  - Cardiac operation [Unknown]

NARRATIVE: CASE EVENT DATE: 20240101
